FAERS Safety Report 9898469 (Version 9)
Quarter: 2018Q4

REPORT INFORMATION
  Report Type: Report from Study
  Country: US (occurrence: US)
  Receive Date: 20140214
  Receipt Date: 20181227
  Transmission Date: 20190205
  Serious: Yes (Hospitalization, Disabling, Other)
  Sender: FDA-Public Use
  Company Number: US-SA-2014SA015203

PATIENT
  Age: 53 Year
  Sex: Male

DRUGS (1)
  1. TERIFLUNOMIDE. [Suspect]
     Active Substance: TERIFLUNOMIDE
     Indication: MULTIPLE SCLEROSIS
     Dosage: 14 MG,QD
     Route: 048
     Dates: start: 20140124

REACTIONS (9)
  - Arthralgia [Recovering/Resolving]
  - Arthritis infective [Unknown]
  - Hip arthroplasty [Unknown]
  - Alopecia [Unknown]
  - Arthropathy [Recovered/Resolved]
  - Walking aid user [Not Recovered/Not Resolved]
  - Necrosis [Not Recovered/Not Resolved]
  - Gait inability [Not Recovered/Not Resolved]
  - Post procedural drainage [Unknown]

NARRATIVE: CASE EVENT DATE: 201401
